FAERS Safety Report 15305213 (Version 1)
Quarter: 2018Q3

REPORT INFORMATION
  Report Type: Report from Study
  Country: CN (occurrence: CN)
  Receive Date: 20180822
  Receipt Date: 20180822
  Transmission Date: 20181010
  Serious: Yes (Other)
  Sender: FDA-Public Use
  Company Number: CN-ROCHE-2168438

PATIENT
  Sex: Female

DRUGS (3)
  1. GEMCITABINE [Suspect]
     Active Substance: GEMCITABINE\GEMCITABINE HYDROCHLORIDE
     Indication: TRIPLE NEGATIVE BREAST CANCER
     Dosage: ON DAY 1 AND DAY 8 IN A CYCLE OF 21 DAYS
     Route: 041
  2. CAPECITABINE. [Suspect]
     Active Substance: CAPECITABINE
     Indication: TRIPLE NEGATIVE BREAST CANCER
     Dosage: FROM DAY 1 TO DAY 14 IN A CYCLE OF 21 DAYS
     Route: 048
  3. CAPECITABINE. [Suspect]
     Active Substance: CAPECITABINE
     Dosage: FROM DAY 1 TO DAY 14 IN A CYCLE OF 21 DAYS
     Route: 048

REACTIONS (7)
  - White blood cell count decreased [Unknown]
  - Vomiting [Unknown]
  - Diarrhoea [Unknown]
  - Platelet count decreased [Unknown]
  - Palmar-plantar erythrodysaesthesia syndrome [Unknown]
  - Mouth injury [Unknown]
  - Nausea [Unknown]
